FAERS Safety Report 10649197 (Version 1)
Quarter: 2014Q4

REPORT INFORMATION
  Report Type: Spontaneous
  Country: CH (occurrence: None)
  Receive Date: 20141210
  Receipt Date: 20141210
  Transmission Date: 20150529
  Serious: Yes (Hospitalization)
  Sender: FDA-Public Use
  Company Number: CH-017984

PATIENT
  Age: 67 Year
  Sex: Female

DRUGS (1)
  1. PICOPREP [Suspect]
     Active Substance: CITRIC ACID MONOHYDRATE\MAGNESIUM OXIDE\SODIUM PICOSULFATE
     Indication: BOWEL PREPARATION
     Route: 048
     Dates: start: 20141001, end: 20141002

REACTIONS (3)
  - Hemiplegia [None]
  - Epilepsy [None]
  - Hyponatraemia [None]

NARRATIVE: CASE EVENT DATE: 20141002
